FAERS Safety Report 7984082-6 (Version None)
Quarter: 2011Q4

REPORT INFORMATION
  Report Type: 
  Country: None (occurrence: None)
  Receive Date: 20111216
  Receipt Date: 20111212
  Transmission Date: 20120403
  Serious: No
  Sender: FDA-Public Use
  Company Number: US-PFIZER INC-2010064235

PATIENT
  Sex: Male
  Weight: 90.703 kg

DRUGS (8)
  1. ALLOPURINOL [Concomitant]
     Indication: GOUT
     Dosage: 100 MG, DAILY
  2. HYDROCHLOROTHIAZIDE [Concomitant]
     Indication: HYPERTENSION
     Dosage: 25 MG, DAILY
  3. TOVIAZ [Suspect]
     Indication: BLADDER DISORDER
     Dosage: UNK, DAILY
     Dates: start: 20080101
  4. GLYBURIDE [Concomitant]
     Indication: GLUCOSE TOLERANCE IMPAIRED
     Dosage: 1.25 MG, 2X/DAY
  5. SIMVASTATIN [Concomitant]
     Indication: BLOOD CHOLESTEROL ABNORMAL
     Dosage: 80 MG, DAILY
  6. CITALOPRAM [Concomitant]
     Indication: DEPRESSION
     Dosage: 20 MG, DAILY
  7. CARBIDOPA + LEVODOPA [Concomitant]
     Indication: PARKINSON'S DISEASE
     Dosage: 50/200 MG, 3X/DAY
  8. CARBIDOPA + LEVODOPA [Concomitant]
     Indication: DEMENTIA

REACTIONS (4)
  - CONSTIPATION [None]
  - FLATULENCE [None]
  - DRY MOUTH [None]
  - DRUG INEFFECTIVE [None]
